FAERS Safety Report 8329531-9 (Version None)
Quarter: 2012Q2

REPORT INFORMATION
  Report Type: 
  Country: None (occurrence: None)
  Receive Date: 20120502
  Receipt Date: 20120424
  Transmission Date: 20120825
  Serious: Yes (Hospitalization, Other)
  Sender: FDA-Public Use
  Company Number: US-ABBOTT-11P-163-0840004-00

PATIENT
  Sex: Female
  Weight: 91.2 kg

DRUGS (18)
  1. ATIVAN [Concomitant]
     Indication: SLEEP DISORDER
  2. BUMEX [Concomitant]
     Indication: PULMONARY HYPERTENSION
  3. FENOFIBRATE [Concomitant]
     Indication: PULMONARY ARTERIAL HYPERTENSION
  4. METOPROLOL TARTRATE [Concomitant]
     Indication: PALPITATIONS
  5. VICODIN [Concomitant]
     Indication: PAIN IN EXTREMITY
  6. VERSED [Concomitant]
     Indication: CATHETERISATION CARDIAC
  7. REVATIO [Concomitant]
     Indication: PULMONARY ARTERIAL HYPERTENSION
  8. DIGOXIN [Concomitant]
     Indication: PULMONARY ARTERIAL HYPERTENSION
  9. POTASSIUM CHLORIDE [Concomitant]
     Indication: PULMONARY HYPERTENSION
  10. PAXIL [Concomitant]
     Indication: DEPRESSION
  11. NIASPAN [Suspect]
     Indication: HYPERLIPIDAEMIA
     Route: 048
     Dates: start: 20110401, end: 20110520
  12. LIDOCAINE [Concomitant]
     Indication: ANAESTHESIA
  13. CICLETANINE HYDROCHLORIDE [Suspect]
     Indication: PULMONARY ARTERIAL HYPERTENSION
     Route: 048
     Dates: start: 20100728
  14. FLOLAN [Concomitant]
     Indication: PULMONARY ARTERIAL HYPERTENSION
  15. OMEPRAZOLE [Concomitant]
     Indication: DYSPEPSIA
  16. NIASPAN [Suspect]
     Indication: HYPERLIPIDAEMIA
     Route: 048
     Dates: start: 20110301, end: 20110401
  17. IMODIUM [Concomitant]
     Indication: DIARRHOEA
  18. SYNTHROID [Concomitant]
     Indication: HYPOTHYROIDISM

REACTIONS (3)
  - SUPRAVENTRICULAR TACHYCARDIA [None]
  - CHEST PAIN [None]
  - PALPITATIONS [None]
